FAERS Safety Report 9851044 (Version 1)
Quarter: 2014Q1

REPORT INFORMATION
  Report Type: Spontaneous
  Country: US (occurrence: US)
  Receive Date: 20140128
  Receipt Date: 20140128
  Transmission Date: 20141002
  Serious: No
  Sender: FDA-Public Use
  Company Number: US-DYAX CORP.-2013DX000144

PATIENT
  Age: 46 Year
  Sex: Female
  Weight: 65.83 kg

DRUGS (6)
  1. KALBITOR [Suspect]
     Indication: HEREDITARY ANGIOEDEMA
     Route: 058
     Dates: start: 20130715, end: 20130715
  2. KALBITOR [Suspect]
     Route: 058
     Dates: start: 20130725, end: 20130725
  3. KALBITOR [Suspect]
     Route: 058
     Dates: start: 201208
  4. XOPENEX HFA [Suspect]
     Indication: EXPOSURE TO MOULD
     Dates: start: 20130718
  5. XOPENEX HFA [Suspect]
     Indication: ASTHMA
  6. PROZAC [Concomitant]
     Indication: DEPRESSION
     Route: 048

REACTIONS (4)
  - Vasodilatation [Recovered/Resolved]
  - Fall [Recovered/Resolved]
  - Tremor [Recovered/Resolved]
  - Off label use [Unknown]
